FAERS Safety Report 6804348-2 (Version None)
Quarter: 2010Q2

REPORT INFORMATION
  Report Type: 
  Country: None (occurrence: None)
  Receive Date: 20100628
  Receipt Date: 20070226
  Transmission Date: 20101027
  Serious: Yes (Other)
  Sender: FDA-Public Use
  Company Number: US-PFIZER INC-2007015895

PATIENT
  Sex: Female
  Weight: 52.2 kg

DRUGS (5)
  1. CADUET [Suspect]
     Indication: BLOOD CHOLESTEROL
     Dosage: 5/10MG
     Dates: start: 20070115, end: 20070226
  2. CADUET [Suspect]
     Indication: ANGINA PECTORIS
  3. NORVASC [Suspect]
  4. LIPITOR [Suspect]
     Indication: BLOOD CHOLESTEROL
  5. ORAL CONTRACEPTIVE NOS [Concomitant]

REACTIONS (1)
  - CHEST PAIN [None]
